FAERS Safety Report 15968388 (Version 1)
Quarter: 2019Q1

REPORT INFORMATION
  Report Type: Other
  Country: DE (occurrence: DE)
  Receive Date: 20190215
  Receipt Date: 20190215
  Transmission Date: 20190418
  Serious: Yes (Hospitalization)
  Sender: FDA-Public Use
  Company Number: DE-ARALEZ PHARMACEUTICALS R+D INC.-2019-ARA-000392

PATIENT
  Age: 59 Year
  Sex: Female
  Weight: 79 kg

DRUGS (7)
  1. METOPROLOL SUCCINATE. [Suspect]
     Active Substance: METOPROLOL SUCCINATE
     Indication: HYPERTENSION
     Dosage: 50 MG, QD
     Route: 048
     Dates: start: 19970619
  2. PANCREATIN [Concomitant]
     Active Substance: PANCRELIPASE
     Indication: PANCREATIC FAILURE
     Dosage: UNK
  3. CRANOC [Suspect]
     Active Substance: FLUVASTATIN SODIUM
     Indication: HYPERCHOLESTEROLAEMIA
     Dosage: 20 MG, QD
     Route: 048
     Dates: start: 19950210
  4. PANACOD [Concomitant]
     Active Substance: ACETAMINOPHEN\CODEINE PHOSPHATE
     Indication: PANCREATIC FAILURE
     Dosage: UNK
     Route: 048
     Dates: start: 19970204
  5. 6-HES [Concomitant]
     Indication: PRODUCT USED FOR UNKNOWN INDICATION
     Dosage: UNK
  6. JINDA [Suspect]
     Active Substance: BLACK COHOSH
     Indication: MENOPAUSAL SYMPTOMS
     Dosage: 1.1 DF, QD
     Route: 048
     Dates: start: 200010
  7. CIMICIFUGA /01456805/ [Suspect]
     Active Substance: BLACK COHOSH
     Indication: MENOPAUSE
     Dosage: UNK

REACTIONS (5)
  - Retinal vein occlusion [Recovering/Resolving]
  - Macular oedema [None]
  - Oedema mucosal [Recovering/Resolving]
  - Retinal haemorrhage [Not Recovered/Not Resolved]
  - Thrombosis [Not Recovered/Not Resolved]

NARRATIVE: CASE EVENT DATE: 20010219
